FAERS Safety Report 4683829-4 (Version None)
Quarter: 2005Q2

REPORT INFORMATION
  Report Type: 
  Country: None (occurrence: None)
  Receive Date: 20050606
  Receipt Date: 20050606
  Transmission Date: 20051028
  Serious: Yes (Hospitalization)
  Sender: FDA-Public Use
  Company Number: None

PATIENT
  Age: 85 Year
  Sex: Male
  Weight: 76.2 kg

DRUGS (8)
  1. VALTREX [Suspect]
     Indication: HERPES ZOSTER
     Dosage: 500MG   DAILY   BY MOUTH
     Route: 048
     Dates: start: 20050519, end: 20050523
  2. CLONIDINE [Concomitant]
  3. TERAZOSIN [Concomitant]
  4. LEXAPRO [Concomitant]
  5. ARICEPT [Concomitant]
  6. KAYEXALATE [Concomitant]
  7. NEPHROVITS [Concomitant]
  8. ASPIRIN [Concomitant]

REACTIONS (6)
  - ASTHENIA [None]
  - CONFUSIONAL STATE [None]
  - HALLUCINATION, VISUAL [None]
  - LETHARGY [None]
  - LOGORRHOEA [None]
  - PARANOIA [None]
